FAERS Safety Report 24931831 (Version 1)
Quarter: 2025Q1

REPORT INFORMATION
  Report Type: Report from Study
  Country: US (occurrence: US)
  Receive Date: 20250205
  Receipt Date: 20250205
  Transmission Date: 20250409
  Serious: No
  Sender: EXELIXIS
  Company Number: US-EXELIXIS-CABO-24078923

PATIENT
  Age: 62 Year
  Sex: Female
  Weight: 50 kg

DRUGS (12)
  1. CABOMETYX [Suspect]
     Active Substance: CABOZANTINIB S-MALATE
     Indication: Thyroid cancer
     Dosage: 40 MG, QD
     Route: 048
     Dates: start: 202402
  2. METHADONE [Concomitant]
     Active Substance: METHADONE HYDROCHLORIDE
  3. OXYCODONE [Concomitant]
     Active Substance: OXYCODONE
  4. DULOXETINE [Concomitant]
     Active Substance: DULOXETINE
  5. MONTELUKAST [Concomitant]
     Active Substance: MONTELUKAST
  6. GABAPENTIN [Concomitant]
     Active Substance: GABAPENTIN
  7. LEVOTHYROXINE [Concomitant]
     Active Substance: LEVOTHYROXINE
  8. AMLODIPINE [Concomitant]
     Active Substance: AMLODIPINE BESYLATE
  9. FOLIC ACID [Concomitant]
     Active Substance: FOLIC ACID
  10. MIRTAZAPINE [Concomitant]
     Active Substance: MIRTAZAPINE
  11. ANORO ELLIPTA [Concomitant]
     Active Substance: UMECLIDINIUM BROMIDE\VILANTEROL TRIFENATATE
  12. VENTOLIN HFA [Concomitant]
     Active Substance: ALBUTEROL SULFATE

REACTIONS (5)
  - Nightmare [Unknown]
  - Contusion [Unknown]
  - Joint swelling [Unknown]
  - Peripheral swelling [Unknown]
  - Fall [Unknown]

NARRATIVE: CASE EVENT DATE: 20240608
